FAERS Safety Report 4649791-5 (Version None)
Quarter: 2005Q2

REPORT INFORMATION
  Report Type: 
  Country: None (occurrence: None)
  Receive Date: 20050428
  Receipt Date: 20050414
  Transmission Date: 20051028
  Serious: Yes (Life-Threatening)
  Sender: FDA-Public Use
  Company Number: S05-FRA-01492-01

PATIENT
  Age: 97 Year
  Sex: Female
  Weight: 38.8 kg

DRUGS (3)
  1. CITALOPRAM HYDROBROMIDE [Suspect]
     Dosage: 0.4 ML QD PO
     Route: 048
     Dates: start: 20050120, end: 20050225
  2. MEMANTINE HCL [Suspect]
     Dates: start: 20050128, end: 20050225
  3. FOLIC ACID [Suspect]
     Dosage: 5 MG BID PO
     Route: 048
     Dates: start: 20050121, end: 20050225

REACTIONS (7)
  - ACTIVITIES OF DAILY LIVING IMPAIRED [None]
  - ASTHENIA [None]
  - DISTURBANCE IN ATTENTION [None]
  - GLASGOW COMA SCALE ABNORMAL [None]
  - LUNG DISORDER [None]
  - MOTOR DYSFUNCTION [None]
  - OXYGEN SATURATION DECREASED [None]
